FAERS Safety Report 21249206 (Version 2)
Quarter: 2022Q4

REPORT INFORMATION
  Report Type: Spontaneous
  Country: FR (occurrence: FR)
  Receive Date: 20220824
  Receipt Date: 20221208
  Transmission Date: 20230112
  Serious: Yes (Other)
  Sender: FDA-Public Use
  Company Number: None

PATIENT
  Age: 33 Year
  Sex: Female
  Weight: 49 kg

DRUGS (1)
  1. BETAMETHASONE DIPROPIONATE\BETAMETHASONE SODIUM PHOSPHATE [Suspect]
     Active Substance: BETAMETHASONE DIPROPIONATE\BETAMETHASONE SODIUM PHOSPHATE
     Indication: Carpal tunnel syndrome
     Dosage: 1 ML (SUSPENSION FOR INJECTION IN PRE-FILLED SYRINGE), ROUTE ALSO GIVEN AS INTRASYNOVIAL
     Route: 014
     Dates: start: 20210728, end: 20210728

REACTIONS (2)
  - Skin atrophy [Not Recovered/Not Resolved]
  - Skin depigmentation [Not Recovered/Not Resolved]

NARRATIVE: CASE EVENT DATE: 20211222
